FAERS Safety Report 8604933-1 (Version None)
Quarter: 2012Q3

REPORT INFORMATION
  Report Type: 
  Country: None (occurrence: None)
  Receive Date: 20120820
  Receipt Date: 20120808
  Transmission Date: 20120928
  Serious: Yes (Other)
  Sender: FDA-Public Use
  Company Number: JP-NOVOPROD-357732

PATIENT
  Age: 37 Year
  Sex: Male

DRUGS (1)
  1. SUREPOST [Suspect]
     Indication: DIABETES MELLITUS
     Dosage: 0.75 MG, QD
     Route: 048

REACTIONS (2)
  - BLOOD GLUCOSE DECREASED [None]
  - VISUAL IMPAIRMENT [None]
